FAERS Safety Report 6274006-4 (Version None)
Quarter: 2009Q3

REPORT INFORMATION
  Report Type: 
  Country: None (occurrence: None)
  Receive Date: 20090720
  Receipt Date: 20090709
  Transmission Date: 20100115
  Serious: Yes (Hospitalization)
  Sender: FDA-Public Use
  Company Number: ES-PFIZER INC-2009237966

PATIENT
  Age: 58 Year

DRUGS (2)
  1. ALDACTONE [Suspect]
     Indication: HEPATIC ENCEPHALOPATHY
     Dosage: 100 MG, 2X/DAY
     Route: 048
     Dates: start: 20050901, end: 20081022
  2. SEGURIL [Suspect]
     Indication: ASCITES
     Dosage: 40 MG, 2X/DAY
     Route: 048
     Dates: start: 20070101, end: 20081022

REACTIONS (4)
  - CONVULSION [None]
  - HYPOKALAEMIA [None]
  - HYPONATRAEMIA [None]
  - ILEUS PARALYTIC [None]
